FAERS Safety Report 5169459-9 (Version None)
Quarter: 2006Q4

REPORT INFORMATION
  Report Type: 
  Country: None (occurrence: None)
  Receive Date: 20061201
  Receipt Date: 20061121
  Transmission Date: 20070319
  Serious: Yes (Hospitalization, Other)
  Sender: FDA-Public Use
  Company Number: 2006083975

PATIENT
  Sex: Male

DRUGS (1)
  1. NEURONTIN [Suspect]
     Indication: BIPOLAR DISORDER

REACTIONS (4)
  - DRUG DEPENDENCE [None]
  - DRUG INEFFECTIVE [None]
  - PSYCHOTIC DISORDER [None]
  - SUICIDE ATTEMPT [None]
